FAERS Safety Report 8321978-X (Version None)
Quarter: 2012Q2

REPORT INFORMATION
  Report Type: 
  Country: None (occurrence: None)
  Receive Date: 20120430
  Receipt Date: 20120418
  Transmission Date: 20120825
  Serious: Yes (Death)
  Sender: FDA-Public Use
  Company Number: CN-JNJFOC-20100501168

PATIENT
  Sex: Male

DRUGS (2)
  1. REMICADE [Suspect]
     Indication: ANKYLOSING SPONDYLITIS
     Route: 042
     Dates: start: 20091222, end: 20091222
  2. REMICADE [Suspect]
     Dosage: 2ND OURSE OF TRETMENT WAS DEC-2009
     Route: 042

REACTIONS (1)
  - PULMONARY MYCOSIS [None]
